FAERS Safety Report 10332650 (Version 1)
Quarter: 2014Q3

REPORT INFORMATION
  Report Type: Spontaneous
  Country: US (occurrence: US)
  Receive Date: 20140722
  Receipt Date: 20140722
  Transmission Date: 20150326
  Serious: No
  Sender: FDA-Public Use
  Company Number: US-ASTRAZENECA-2014SE02026

PATIENT
  Age: 52 Year
  Sex: Female

DRUGS (2)
  1. SEROQUEL [Suspect]
     Active Substance: QUETIAPINE FUMARATE
     Indication: DEPRESSION
     Route: 048
  2. SEROQUEL [Suspect]
     Active Substance: QUETIAPINE FUMARATE
     Indication: DEPRESSION
     Route: 048
     Dates: start: 201312

REACTIONS (3)
  - Dysarthria [Unknown]
  - Off label use [Unknown]
  - Memory impairment [Unknown]

NARRATIVE: CASE EVENT DATE: 201312
